FAERS Safety Report 5214997-3 (Version None)
Quarter: 2007Q1

REPORT INFORMATION
  Report Type: 
  Country: None (occurrence: None)
  Receive Date: 20070117
  Receipt Date: 20070102
  Transmission Date: 20070707
  Serious: Yes (Hospitalization, Other)
  Sender: FDA-Public Use
  Company Number: 15459

PATIENT
  Sex: Male

DRUGS (8)
  1. ACYCLOVIR [Suspect]
     Dosage: 360 MG TID IV
     Route: 042
     Dates: start: 20061108, end: 20061113
  2. FLUCLOXACILLIN [Concomitant]
  3. GENTAMICIN SULFATE [Concomitant]
  4. GRANISTRON [Concomitant]
  5. MERCAPTOPURINE [Concomitant]
  6. MEROPENEM [Concomitant]
  7. ORAMORPH SR [Concomitant]
  8. ACETAMINOPHEN [Concomitant]

REACTIONS (5)
  - AGGRESSION [None]
  - DYSTONIA [None]
  - HALLUCINATION [None]
  - MENINGITIS [None]
  - SOCIAL AVOIDANT BEHAVIOUR [None]
